FAERS Safety Report 7033060-2 (Version None)
Quarter: 2010Q4

REPORT INFORMATION
  Report Type: 
  Country: None (occurrence: None)
  Receive Date: 20101004
  Receipt Date: 20100922
  Transmission Date: 20110411
  Serious: Yes (Hospitalization)
  Sender: FDA-Public Use
  Company Number: LEO-2010-00869

PATIENT
  Sex: Female
  Weight: 52 kg

DRUGS (1)
  1. INNOHEP [Suspect]
     Indication: PULMONARY EMBOLISM
     Dosage: (10000 IU),SUBCUTANEOUS
     Route: 058

REACTIONS (2)
  - DISEASE RECURRENCE [None]
  - PULMONARY EMBOLISM [None]
